FAERS Safety Report 6046017-5 (Version None)
Quarter: 2009Q1

REPORT INFORMATION
  Report Type: 
  Country: None (occurrence: None)
  Receive Date: 20090116
  Receipt Date: 20090102
  Transmission Date: 20090719
  Serious: Yes (Hospitalization)
  Sender: FDA-Public Use
  Company Number: 2009MB000001

PATIENT
  Age: 53 Year
  Sex: Female

DRUGS (2)
  1. KEFLEX [Suspect]
     Indication: CHOLELITHIASIS
     Dates: start: 20080701, end: 20080101
  2. ZEMPLAR [Suspect]
     Indication: HYPERPARATHYROIDISM SECONDARY
     Dosage: 2 UG;
     Dates: start: 20071001

REACTIONS (3)
  - CHOLELITHIASIS [None]
  - ORAL MUCOSAL DISCOLOURATION [None]
  - PHARYNGEAL DISORDER [None]
